FAERS Safety Report 15718728 (Version 1)
Quarter: 2018Q4

REPORT INFORMATION
  Report Type: Report from Study
  Country: US (occurrence: US)
  Receive Date: 20181213
  Receipt Date: 20181213
  Transmission Date: 20190205
  Serious: Yes (Other)
  Sender: FDA-Public Use
  Company Number: US-TEVA-2018-US-987440

PATIENT
  Sex: Female

DRUGS (2)
  1. AUSTEDO [Suspect]
     Active Substance: DEUTETRABENAZINE
     Dosage: TITRATING UP TO 6MG TWICE DAILY
     Route: 065
     Dates: end: 20181210
  2. AUSTEDO [Suspect]
     Active Substance: DEUTETRABENAZINE
     Indication: TARDIVE DYSKINESIA
     Route: 065
     Dates: start: 20180927

REACTIONS (5)
  - Dyskinesia [Unknown]
  - Psychomotor hyperactivity [Unknown]
  - Exophthalmos [Unknown]
  - Insomnia [Unknown]
  - Agitation [Unknown]
